FAERS Safety Report 6092474-8 (Version None)
Quarter: 2009Q1

REPORT INFORMATION
  Report Type: 
  Country: None (occurrence: None)
  Receive Date: 20090225
  Receipt Date: 20090213
  Transmission Date: 20090719
  Serious: Yes (Death, Hospitalization)
  Sender: FDA-Public Use
  Company Number: ES-PFIZER INC-2009166633

PATIENT

DRUGS (5)
  1. SUNITINIB MALATE [Suspect]
     Indication: TRANSITIONAL CELL CARCINOMA
     Dosage: 50 MG, 1X/DAY
     Route: 048
     Dates: start: 20090119, end: 20090204
  2. SPIRIVA [Concomitant]
     Indication: CHRONIC OBSTRUCTIVE PULMONARY DISEASE
     Dosage: UNK, 1 INHALATION DAILY
     Route: 045
     Dates: start: 20080714
  3. OXYGEN [Concomitant]
     Indication: CHRONIC OBSTRUCTIVE PULMONARY DISEASE
     Dosage: UNK
     Dates: start: 20081223
  4. CLEXANE [Concomitant]
     Indication: PULMONARY EMBOLISM
     Dosage: 160 MG, DAILY
     Route: 058
     Dates: start: 20090108, end: 20090206
  5. TIRODRIL [Concomitant]
     Indication: HYPERTHYROIDISM
     Dosage: 20 MG, DAILY
     Route: 048
     Dates: start: 20090123

REACTIONS (1)
  - MYOCARDIAL ISCHAEMIA [None]
